FAERS Safety Report 5208984-9 (Version None)
Quarter: 2007Q1

REPORT INFORMATION
  Report Type: 
  Country: None (occurrence: None)
  Receive Date: 20070116
  Receipt Date: 20070108
  Transmission Date: 20070707
  Serious: Yes (Disabling)
  Sender: FDA-Public Use
  Company Number: FR-GLAXOSMITHKLINE-B0453352A

PATIENT
  Age: 29 Year
  Sex: Female

DRUGS (2)
  1. LAMICTAL [Suspect]
     Indication: EPILEPSY
     Dosage: 500MG PER DAY
     Route: 048
  2. EPITOMAX [Suspect]
     Indication: EPILEPSY
     Route: 048
     Dates: start: 20061025, end: 20061129

REACTIONS (4)
  - DIPLOPIA [None]
  - IIIRD NERVE PARALYSIS [None]
  - MULTIPLE SCLEROSIS [None]
  - PARAESTHESIA [None]
